FAERS Safety Report 15397105 (Version 1)
Quarter: 2018Q3

REPORT INFORMATION
  Report Type: Spontaneous
  Country: US (occurrence: US)
  Receive Date: 20180913
  Receipt Date: 20180913
  Transmission Date: 20181010
  Serious: Yes (Other)
  Sender: FDA-Public Use
  Company Number: None

PATIENT
  Age: 69 Year
  Sex: Female
  Weight: 65.25 kg

DRUGS (9)
  1. STERTRALINE HCL [Concomitant]
  2. TURMERIC [Concomitant]
     Active Substance: HERBALS\TURMERIC
  3. AMITRIPTYLINE HCL 25MG [Suspect]
     Active Substance: AMITRIPTYLINE
     Indication: INSOMNIA
     Dosage: ?          QUANTITY:30 TABLET(S);?
     Route: 048
     Dates: start: 20180622, end: 20180822
  4. CURCUMIN [Concomitant]
     Active Substance: CURCUMIN
  5. GABAPENTIN. [Concomitant]
     Active Substance: GABAPENTIN
  6. CELECOXIB. [Concomitant]
     Active Substance: CELECOXIB
  7. SIMVASTATIN. [Concomitant]
     Active Substance: SIMVASTATIN
  8. HYDROCODONE?ACETAMINOPHE [Concomitant]
  9. WOMEN^S DAILY VITAMINS [Concomitant]

REACTIONS (1)
  - Exploding head syndrome [None]

NARRATIVE: CASE EVENT DATE: 20180716
